FAERS Safety Report 7982063-X (Version None)
Quarter: 2011Q4

REPORT INFORMATION
  Report Type: 
  Country: None (occurrence: None)
  Receive Date: 20111215
  Receipt Date: 20111212
  Transmission Date: 20120403
  Serious: Yes (Other)
  Sender: FDA-Public Use
  Company Number: DE-SANOFI-AVENTIS-2011SA081321

PATIENT
  Age: 10 Month
  Sex: Male

DRUGS (1)
  1. ARAVA [Suspect]
     Indication: ACCIDENTAL DRUG INTAKE BY CHILD
     Route: 065
     Dates: start: 20110101

REACTIONS (1)
  - ACCIDENTAL DRUG INTAKE BY CHILD [None]
